FAERS Safety Report 6509513-X (Version None)
Quarter: 2009Q4

REPORT INFORMATION
  Report Type: 
  Country: None (occurrence: None)
  Receive Date: 20091217
  Receipt Date: 20091202
  Transmission Date: 20100525
  Serious: Yes (Life-Threatening, Other)
  Sender: FDA-Public Use
  Company Number: DE-1180013

PATIENT
  Age: 74 Year
  Sex: Female

DRUGS (8)
  1. FLUORESCITE [Suspect]
     Indication: DIABETIC RETINOPATHY
     Dosage: 5 ML
     Route: 040
     Dates: start: 20091021, end: 20091021
  2. L-THYROX (LEVOTHYROXINE SODIUM) [Concomitant]
  3. OXAZEPAM [Concomitant]
  4. LISINOPRIL [Concomitant]
  5. LANTUS [Concomitant]
  6. THIORIDAZINE HCL [Concomitant]
  7. VOLTAREN [Concomitant]
  8. METFORMIN HCL [Concomitant]

REACTIONS (11)
  - ASTHENIA [None]
  - BLOOD GLUCOSE INCREASED [None]
  - BLOOD PRESSURE DIASTOLIC DECREASED [None]
  - CARDIAC ARREST [None]
  - CONVULSION [None]
  - FALL [None]
  - FATIGUE [None]
  - HYPERHIDROSIS [None]
  - LOSS OF CONSCIOUSNESS [None]
  - RESPIRATORY ARREST [None]
  - SYNCOPE [None]
